FAERS Safety Report 24801675 (Version 2)
Quarter: 2025Q1

REPORT INFORMATION
  Report Type: Spontaneous
  Country: US (occurrence: US)
  Receive Date: 20250102
  Receipt Date: 20250131
  Transmission Date: 20250409
  Serious: No
  Sender: PFIZER
  Company Number: US-PFIZER INC-PV202400166780

PATIENT

DRUGS (3)
  1. GENOTROPIN [Suspect]
     Active Substance: SOMATROPIN
     Route: 058
  2. GENOTROPIN [Suspect]
     Active Substance: SOMATROPIN
     Route: 058
  3. GENOTROPIN [Suspect]
     Active Substance: SOMATROPIN
     Route: 058

REACTIONS (2)
  - Device leakage [Unknown]
  - Product reconstitution quality issue [Unknown]
